FAERS Safety Report 18133608 (Version 1)
Quarter: 2020Q3

REPORT INFORMATION
  Report Type: Spontaneous
  Country: CA (occurrence: CA)
  Receive Date: 20200811
  Receipt Date: 20200811
  Transmission Date: 20201103
  Serious: Yes (Life-Threatening)
  Sender: FDA-Public Use
  Company Number: CA-ACCORD-194674

PATIENT
  Age: 4 Year
  Sex: Female
  Weight: 16 kg

DRUGS (41)
  1. METHOTREXATE. [Suspect]
     Active Substance: METHOTREXATE
     Indication: ACUTE LYMPHOCYTIC LEUKAEMIA
     Route: 042
  2. RANITIDINE. [Concomitant]
     Active Substance: RANITIDINE
  3. PREDNISONE. [Concomitant]
     Active Substance: PREDNISONE
  4. FUROSEMIDE. [Concomitant]
     Active Substance: FUROSEMIDE
  5. FAMCICLOVIR. [Concomitant]
     Active Substance: FAMCICLOVIR
  6. DIPHENHYDRAMINE. [Concomitant]
     Active Substance: DIPHENHYDRAMINE
  7. CLOTRIMAZOLE. [Concomitant]
     Active Substance: CLOTRIMAZOLE
  8. ALTEPLASE. [Concomitant]
     Active Substance: ALTEPLASE
  9. BUSULFAN. [Suspect]
     Active Substance: BUSULFAN
     Indication: ACUTE LYMPHOCYTIC LEUKAEMIA
     Route: 042
  10. BUSULFAN. [Suspect]
     Active Substance: BUSULFAN
     Indication: ACUTE LYMPHOCYTIC LEUKAEMIA
     Route: 042
  11. NIFEDIPINE. [Concomitant]
     Active Substance: NIFEDIPINE
  12. DEXAMETHASONE. [Concomitant]
     Active Substance: DEXAMETHASONE
     Route: 014
  13. CALCIUM/COLECALCIFEROL [Concomitant]
     Active Substance: CALCIUM\CHOLECALCIFEROL
  14. LORAZEPAM. [Concomitant]
     Active Substance: LORAZEPAM
  15. VANCOMYCIN [Concomitant]
     Active Substance: VANCOMYCIN
  16. TOBRAMYCIN. [Concomitant]
     Active Substance: TOBRAMYCIN
  17. PIPERACILLIN/TAZOBACTAM [Concomitant]
     Active Substance: PIPERACILLIN SODIUM\TAZOBACTAM SODIUM
  18. MAGNESIUM HYDROXIDE. [Concomitant]
     Active Substance: MAGNESIUM HYDROXIDE
  19. HEPARIN [Concomitant]
     Active Substance: HEPARIN SODIUM
  20. FLUCONAZOLE. [Concomitant]
     Active Substance: FLUCONAZOLE
  21. RITUXIMAB. [Suspect]
     Active Substance: RITUXIMAB
     Indication: ACUTE LYMPHOCYTIC LEUKAEMIA
     Route: 042
  22. TRANEXAMIC ACID. [Concomitant]
     Active Substance: TRANEXAMIC ACID
  23. CHLORHEXIDINE [Concomitant]
     Active Substance: CHLORHEXIDINE
  24. FLUDARABINE/FLUDARABINE PHOSPHATE [Suspect]
     Active Substance: FLUDARABINE PHOSPHATE
     Indication: ACUTE LYMPHOCYTIC LEUKAEMIA
     Route: 042
  25. METOCLOPRAMIDE/METOCLOPRAMIDE GLYCYRRHETINATE/METOCLOPRAMIDE HYDROCHLORIDE [Concomitant]
  26. BUSULFAN. [Suspect]
     Active Substance: BUSULFAN
     Indication: ACUTE LYMPHOCYTIC LEUKAEMIA
     Route: 042
  27. THIOTEPA. [Suspect]
     Active Substance: THIOTEPA
     Indication: ACUTE LYMPHOCYTIC LEUKAEMIA
     Route: 042
  28. SULFAMETHOXAZOLE/TRIMETHOPRIM [Concomitant]
     Active Substance: SULFAMETHOXAZOLE\TRIMETHOPRIM
  29. MACROGOL [Concomitant]
     Active Substance: POLYETHYLENE GLYCOLS
  30. EPINEPHRINE. [Concomitant]
     Active Substance: EPINEPHRINE
     Route: 030
  31. DIMENHYDRINATE. [Concomitant]
     Active Substance: DIMENHYDRINATE
  32. CEFTAZIDIME/CEFTAZIDIME PENTAHYDRATE [Concomitant]
     Active Substance: CEFTAZIDIME
  33. BETAMETHASONE. [Concomitant]
     Active Substance: BETAMETHASONE
     Route: 061
  34. RITUXIMAB. [Suspect]
     Active Substance: RITUXIMAB
     Indication: ACUTE LYMPHOCYTIC LEUKAEMIA
     Route: 042
  35. BUSULFAN. [Suspect]
     Active Substance: BUSULFAN
     Indication: ACUTE LYMPHOCYTIC LEUKAEMIA
     Route: 042
  36. ONDANSETRON [Concomitant]
     Active Substance: ONDANSETRON
  37. MORPHINE [Concomitant]
     Active Substance: MORPHINE
  38. LEVETIRACETAM. [Concomitant]
     Active Substance: LEVETIRACETAM
  39. CICLOSPORIN [Concomitant]
     Active Substance: CYCLOSPORINE
  40. AMLODIPINE [Concomitant]
     Active Substance: AMLODIPINE BESYLATE
  41. PARACETAMOL [Concomitant]
     Active Substance: ACETAMINOPHEN

REACTIONS (9)
  - Aplastic anaemia [Unknown]
  - Aplasia [Unknown]
  - Cytopenia [Unknown]
  - Bacteraemia [Unknown]
  - Epstein-Barr virus infection [Unknown]
  - Pancytopenia [Unknown]
  - Transfusion [Unknown]
  - Epistaxis [Unknown]
  - Thrombocytopenia [Unknown]
